FAERS Safety Report 25464774 (Version 1)
Quarter: 2025Q2

REPORT INFORMATION
  Report Type: Spontaneous
  Country: FR (occurrence: FR)
  Receive Date: 20250622
  Receipt Date: 20250622
  Transmission Date: 20250716
  Serious: Yes (Hospitalization)
  Sender: AUROBINDO
  Company Number: FR-AFSSAPS-AN2025000710

PATIENT
  Age: 5 Year
  Sex: Male
  Weight: 22 kg

DRUGS (1)
  1. RISPERIDONE [Suspect]
     Active Substance: RISPERIDONE
     Indication: Attention deficit hyperactivity disorder
     Dosage: 4 MILLIGRAM, ONCE A DAY
     Route: 048
     Dates: start: 20250430, end: 20250501

REACTIONS (6)
  - Salivary hypersecretion [Recovered/Resolved]
  - Bradyphrenia [Recovered/Resolved]
  - Gait disturbance [Recovered/Resolved]
  - Asthenia [Recovered/Resolved]
  - Incorrect dose administered [Recovered/Resolved]
  - Device use confusion [Recovered/Resolved]

NARRATIVE: CASE EVENT DATE: 20250430
